FAERS Safety Report 9713888 (Version 1)
Quarter: 2013Q4

REPORT INFORMATION
  Report Type: Spontaneous
  Country: JP (occurrence: JP)
  Receive Date: 20131126
  Receipt Date: 20131126
  Transmission Date: 20140711
  Serious: Yes (Other)
  Sender: FDA-Public Use
  Company Number: JP-GLAXOSMITHKLINE-B0947312A

PATIENT
  Age: 5 Decade
  Sex: Male

DRUGS (7)
  1. PAXIL [Suspect]
     Dosage: 408IUAX PER DAY
     Route: 048
  2. CLOMIPRAMINE HYDROCHLORIDE [Suspect]
     Dosage: 52IUAX PER DAY
     Route: 048
  3. BROMAZEPAM [Suspect]
     Dosage: 159IUAX PER DAY
     Route: 048
  4. LORAZEPAM [Suspect]
     Dosage: 159IUAX PER DAY
     Route: 048
  5. ETIZOLAM [Suspect]
     Dosage: 372IUAX PER DAY
     Route: 048
  6. AMOBARBITAL [Suspect]
     Route: 048
  7. BROMISOVAL [Suspect]
     Route: 048

REACTIONS (12)
  - Withdrawal syndrome [Unknown]
  - Respiratory failure [Unknown]
  - Electrocardiogram QT prolonged [Unknown]
  - Electrocardiogram QRS complex prolonged [Unknown]
  - Decubitus ulcer [Unknown]
  - Pneumonia aspiration [Unknown]
  - Restlessness [Unknown]
  - Irritability [Unknown]
  - Insomnia [Unknown]
  - Delirium [Unknown]
  - Overdose [Unknown]
  - Drug dependence [Unknown]
